FAERS Safety Report 7945103-X (Version None)
Quarter: 2011Q4

REPORT INFORMATION
  Report Type: 
  Country: None (occurrence: None)
  Receive Date: 20111129
  Receipt Date: 20111129
  Transmission Date: 20120403
  Serious: Yes (Hospitalization)
  Sender: FDA-Public Use
  Company Number: None

PATIENT
  Age: 76 Year
  Sex: Female
  Weight: 70 kg

DRUGS (1)
  1. OMNISCAN [Suspect]
     Indication: NUCLEAR MAGNETIC RESONANCE IMAGING
     Dosage: 4,018MG -14ML-
     Route: 042
     Dates: start: 20110120, end: 20110120

REACTIONS (1)
  - RENAL TUBULAR NECROSIS [None]
